FAERS Safety Report 5377077-2 (Version None)
Quarter: 2007Q2

REPORT INFORMATION
  Report Type: 
  Country: None (occurrence: None)
  Receive Date: 20070628
  Receipt Date: 20070628
  Transmission Date: 20071010
  Serious: No
  Sender: FDA-Public Use
  Company Number: None

PATIENT
  Sex: Female
  Weight: 83.19 kg

DRUGS (7)
  1. RISPERIDONE [Suspect]
     Indication: PSYCHOTIC DISORDER
     Dosage: 1 MG HS PO
     Route: 048
     Dates: start: 20060322, end: 20070627
  2. BENZTROPINE [Concomitant]
  3. DOCUSATE [Concomitant]
  4. MAGNESIA CITRATE [Concomitant]
  5. OLANZAPINE [Concomitant]
  6. ZYDIS [Concomitant]
  7. SENNA [Concomitant]

REACTIONS (2)
  - MUSCLE RIGIDITY [None]
  - TARDIVE DYSKINESIA [None]
